FAERS Safety Report 5832951-5 (Version None)
Quarter: 2008Q3

REPORT INFORMATION
  Report Type: 
  Country: None (occurrence: None)
  Receive Date: 20080731
  Receipt Date: 20080722
  Transmission Date: 20090109
  Serious: Yes (Hospitalization)
  Sender: FDA-Public Use
  Company Number: 2008BI018499

PATIENT
  Age: 37 Year
  Sex: Male

DRUGS (1)
  1. AVONEX [Suspect]
     Indication: MULTIPLE SCLEROSIS
     Dosage: IM
     Route: 030
     Dates: start: 20080707

REACTIONS (5)
  - ASTHENIA [None]
  - BALANCE DISORDER [None]
  - DYSARTHRIA [None]
  - GAIT DISTURBANCE [None]
  - MEMORY IMPAIRMENT [None]
